FAERS Safety Report 12899577 (Version 1)
Quarter: 2016Q4

REPORT INFORMATION
  Report Type: Spontaneous
  Country: US (occurrence: US)
  Receive Date: 20161030
  Receipt Date: 20161030
  Transmission Date: 20170207
  Serious: Yes (Disabling)
  Sender: FDA-Public Use
  Company Number: None

PATIENT
  Age: 61 Year
  Sex: Female
  Weight: 49.5 kg

DRUGS (2)
  1. FLUTICASONE PROPIONATE 50 SUSP APOTEX [Suspect]
     Active Substance: FLUTICASONE PROPIONATE
     Indication: SINUSITIS
     Route: 055
     Dates: start: 20160606, end: 20160705
  2. METHYLPREDINISO-LONE 4MG TBPK [Suspect]
     Active Substance: METHYLPREDNISOLONE
     Indication: SINUSITIS
     Route: 048
     Dates: start: 20160606, end: 20160627

REACTIONS (1)
  - Cataract [None]

NARRATIVE: CASE EVENT DATE: 20160705
